FAERS Safety Report 17059272 (Version 1)
Quarter: 2019Q4

REPORT INFORMATION
  Report Type: Spontaneous
  Country: KR (occurrence: KR)
  Receive Date: 20191121
  Receipt Date: 20191121
  Transmission Date: 20200122
  Serious: Yes (Other)
  Sender: FDA-Public Use
  Company Number: KR-BAYER-2019-204928

PATIENT
  Sex: Female

DRUGS (1)
  1. QLAIRA [Suspect]
     Active Substance: DIENOGEST\ESTRADIOL VALERATE
     Indication: MENORRHAGIA
     Dosage: UNK UNK, BID
     Route: 048
     Dates: start: 20191103

REACTIONS (9)
  - Fibrocystic breast disease [None]
  - Product use in unapproved indication [None]
  - Chest pain [None]
  - Breast swelling [None]
  - Off label use [None]
  - Acne [None]
  - Vaginal discharge [None]
  - Breast discomfort [None]
  - Inappropriate schedule of product administration [None]
